FAERS Safety Report 26002247 (Version 1)
Quarter: 2025Q4

REPORT INFORMATION
  Report Type: Spontaneous
  Country: CN (occurrence: CN)
  Receive Date: 20251105
  Receipt Date: 20251105
  Transmission Date: 20260118
  Serious: Yes (Hospitalization)
  Sender: BEIGENE
  Company Number: CN-BEIGENE-BGN-2025-018816

PATIENT
  Age: 55 Year
  Weight: 46 kg

DRUGS (8)
  1. TISLELIZUMAB [Suspect]
     Active Substance: TISLELIZUMAB
     Indication: Adenosquamous cell lung cancer recurrent
     Dosage: 0.2 GRAM D1, Q3WK
  2. TISLELIZUMAB [Suspect]
     Active Substance: TISLELIZUMAB
     Dosage: 0.2 GRAM D1, Q3WK
     Route: 041
  3. TISLELIZUMAB [Suspect]
     Active Substance: TISLELIZUMAB
     Dosage: 0.2 GRAM D1, Q3WK
     Route: 041
  4. TISLELIZUMAB [Suspect]
     Active Substance: TISLELIZUMAB
     Dosage: 0.2 GRAM D1, Q3WK
  5. DOCETAXEL [Suspect]
     Active Substance: DOCETAXEL
     Indication: Adenosquamous cell lung cancer recurrent
     Dosage: 90 MILLIGRAM D1, Q3WK
     Route: 041
  6. DOCETAXEL [Suspect]
     Active Substance: DOCETAXEL
     Dosage: 90 MILLIGRAM D1, Q3WK
  7. CATEQUENTINIB DIHYDROCHLORIDE [Suspect]
     Active Substance: CATEQUENTINIB DIHYDROCHLORIDE
     Indication: Adenosquamous cell lung cancer recurrent
     Dosage: 8 MG (ALSO REPORTED AS 56 MG) D1-14, Q3WK
     Route: 048
  8. CATEQUENTINIB DIHYDROCHLORIDE [Suspect]
     Active Substance: CATEQUENTINIB DIHYDROCHLORIDE
     Dosage: 8 MG (ALSO REPORTED AS 56 MG) D1-14, Q3WK

REACTIONS (1)
  - Myelosuppression [Unknown]
